FAERS Safety Report 5120287-X (Version None)
Quarter: 2006Q4

REPORT INFORMATION
  Report Type: 
  Country: None (occurrence: None)
  Receive Date: 20061004
  Receipt Date: 20060928
  Transmission Date: 20070319
  Serious: Yes (Other)
  Sender: FDA-Public Use
  Company Number: US-BRISTOL-MYERS SQUIBB COMPANY-13524970

PATIENT
  Age: 58 Year
  Sex: Female

DRUGS (3)
  1. TAXOL [Suspect]
  2. CLOZAPINE [Concomitant]
  3. CLOZAPINE [Concomitant]

REACTIONS (2)
  - GRANULOCYTOPENIA [None]
  - LEUKOPENIA [None]
